FAERS Safety Report 7512142-2 (Version None)
Quarter: 2011Q2

REPORT INFORMATION
  Report Type: 
  Country: None (occurrence: None)
  Receive Date: 20110520
  Receipt Date: 20110509
  Transmission Date: 20111010
  Serious: Yes (Hospitalization)
  Sender: FDA-Public Use
  Company Number: 2011S1000652

PATIENT
  Age: 70 Year
  Sex: Female

DRUGS (4)
  1. AMLODIPINE BESYLATE [Concomitant]
  2. LIVALO [Suspect]
     Indication: HYPERCHOLESTEROLAEMIA
     Dosage: 2 MG; 1X; PO
     Route: 048
     Dates: start: 20101029, end: 20110502
  3. DEPAS [Concomitant]
  4. LOSARTAN POTASSIUM AND HYDROCHLOROTHIAZIDE [Concomitant]

REACTIONS (4)
  - RHABDOMYOLYSIS [None]
  - MYOGLOBIN BLOOD INCREASED [None]
  - BLOOD CREATINE PHOSPHOKINASE INCREASED [None]
  - APHAGIA [None]
